FAERS Safety Report 4367689-7 (Version None)
Quarter: 2004Q2

REPORT INFORMATION
  Report Type: 
  Country: None (occurrence: None)
  Receive Date: 20040526
  Receipt Date: 20040302
  Transmission Date: 20050107
  Serious: No
  Sender: FDA-Public Use
  Company Number: 2004US002044

PATIENT
  Age: 58 Year
  Sex: Male
  Weight: 46.2669 kg

DRUGS (10)
  1. ALOXI [Suspect]
     Indication: PROPHYLAXIS OF NAUSEA AND VOMITING
     Dosage: 25 MG, SINGLE, WEEKLY, INTRAVENOUS
     Route: 042
     Dates: start: 20040113, end: 20040302
  2. DEXAMETHASONE [Concomitant]
  3. SODIUM CHLORIDE [Concomitant]
  4. CARBOPLATIN [Concomitant]
  5. TAXOTERE [Concomitant]
  6. DECADRON [Concomitant]
  7. TIAZAC (DITLITAZEM HYDROCHLORIDE) [Concomitant]
  8. ZOCOR [Concomitant]
  9. ZESTORETIC [Concomitant]
  10. LOVENOX [Concomitant]

REACTIONS (2)
  - DYSPNOEA [None]
  - FLUSHING [None]
